FAERS Safety Report 26189308 (Version 1)
Quarter: 2025Q4

REPORT INFORMATION
  Report Type: Spontaneous
  Country: US (occurrence: US)
  Receive Date: 20251223
  Receipt Date: 20251223
  Transmission Date: 20260118
  Serious: Yes (Other)
  Sender: AUROBINDO
  Company Number: US-AUROBINDO-AUR-APL-2025-047423

PATIENT
  Age: 81 Year
  Sex: Female
  Weight: 72.121 kg

DRUGS (18)
  1. LENALIDOMIDE [Suspect]
     Active Substance: LENALIDOMIDE
     Indication: Plasma cell myeloma
     Dosage: 5 MILLIGRAM, 21/28 CYCLE DAILY
     Route: 061
  2. Acetaminophen Oral Tablet 325 Mg [Concomitant]
     Indication: Product used for unknown indication
     Dosage: UNK
     Route: 061
  3. ACYCLOVIR 400MG TABS [Concomitant]
     Indication: Product used for unknown indication
     Dosage: UNK
     Route: 065
  4. BENADRYL ALLERGY 25MG CAPS [Concomitant]
     Indication: Product used for unknown indication
     Dosage: UNK
     Route: 065
  5. BUSPIRONE HYDROCHLORIDE [Concomitant]
     Active Substance: BUSPIRONE HYDROCHLORIDE
     Indication: Product used for unknown indication
     Dosage: UNK
     Route: 065
  6. Dexamethasone Inj 4Mg/MI, 1MI [Concomitant]
     Indication: Product used for unknown indication
     Dosage: 1 MILLILITER
     Route: 065
  7. Diclofenac Gel 1% 100Gm [Concomitant]
     Indication: Product used for unknown indication
     Dosage: 100 GRAM
     Route: 065
  8. Docusate Sodium Caps 100 Mg [Concomitant]
     Indication: Product used for unknown indication
     Dosage: UNK
     Route: 065
  9. FAMOTIDINE 40MG TABS [Concomitant]
     Indication: Product used for unknown indication
     Dosage: UNK
     Route: 065
  10. FOLIC ACID 1MG TABS [Concomitant]
     Indication: Product used for unknown indication
     Dosage: UNK
     Route: 065
  11. Furosemide Oral Tablet 40 Mg Leadin [Concomitant]
     Indication: Product used for unknown indication
     Dosage: UNK
     Route: 061
  12. GABAPENTIN [Concomitant]
     Active Substance: GABAPENTIN
     Indication: Product used for unknown indication
     Dosage: UNK
     Route: 065
  13. HYDROCODONE-ACETAMINOPHE 5-325 TABS [Concomitant]
     Indication: Product used for unknown indication
     Dosage: UNK
     Route: 065
  14. Levothyroxine Sodium 75 Mcg Tab [Concomitant]
     Indication: Product used for unknown indication
     Dosage: UNK
     Route: 065
  15. MAGNESIUM 200MG TABS [Concomitant]
     Indication: Product used for unknown indication
     Dosage: UNK
     Route: 065
  16. Ondansetron 4Mg Odt Aurobindo [Concomitant]
     Indication: Product used for unknown indication
     Dosage: UNK
     Route: 065
  17. Vitamin B-12 Oral Tablet 100 Mcg [Concomitant]
     Indication: Product used for unknown indication
     Dosage: UNK
     Route: 061
  18. Vitamin D3 Cap 1.25 Mg (50,000U) [Concomitant]
     Indication: Product used for unknown indication
     Dosage: UNK
     Route: 065

REACTIONS (3)
  - Neuropathy peripheral [Not Recovered/Not Resolved]
  - Diarrhoea [Not Recovered/Not Resolved]
  - Taste disorder [Not Recovered/Not Resolved]
